FAERS Safety Report 7870378 (Version 3)
Quarter: 2014Q1

REPORT INFORMATION
  Report Type: Spontaneous
  Country: US (occurrence: US)
  Receive Date: 20110324
  Receipt Date: 20140321
  Transmission Date: 20141002
  Serious: Yes (Hospitalization, Other)
  Sender: FDA-Public Use
  Company Number: US-B.I. PHARMACEUTICALS,INC./RIDGEFIELD-2011-BP-08696BP

PATIENT
  Age: 66 Year
  Sex: Male
  Weight: 90.72 kg

DRUGS (10)
  1. PRADAXA [Suspect]
     Indication: ATRIAL FIBRILLATION
     Dosage: 300 MG
     Route: 048
     Dates: start: 20101215, end: 20131215
  2. PRADAXA [Suspect]
     Dosage: 300 MG
     Route: 048
  3. SIMVASTATIN [Concomitant]
     Indication: BLOOD CHOLESTEROL INCREASED
     Dosage: 20 MG
     Route: 048
  4. TRICOR [Concomitant]
     Indication: BLOOD CHOLESTEROL INCREASED
     Dosage: 48 MG
     Route: 048
  5. ATENOLOL [Concomitant]
     Indication: HYPERTENSION
     Dosage: 25 MG
     Route: 048
  6. DIOVAN [Concomitant]
     Indication: HYPERTENSION
     Dosage: 160 MG
     Route: 048
  7. ASA [Concomitant]
     Indication: PROPHYLAXIS
     Dosage: 81 MG
     Route: 048
     Dates: start: 2007, end: 2010
  8. ASA [Concomitant]
     Dosage: 162 MG
     Route: 048
  9. PLAVIX [Concomitant]
     Indication: ATRIAL FIBRILLATION
     Dosage: 75 MG
     Route: 048
     Dates: start: 2007, end: 2010
  10. PLAVIX [Concomitant]
     Dosage: 162 MG
     Route: 048

REACTIONS (13)
  - Ischaemic stroke [Recovered/Resolved]
  - Haematuria [Recovered/Resolved]
  - Mouth haemorrhage [Recovered/Resolved]
  - Haemorrhage [Unknown]
  - Blindness [Not Recovered/Not Resolved]
  - Diarrhoea [Not Recovered/Not Resolved]
  - Amnesia [Recovered/Resolved with Sequelae]
  - Attention-seeking behaviour [Recovered/Resolved with Sequelae]
  - Visual acuity reduced [Recovered/Resolved with Sequelae]
  - Speech disorder [Recovered/Resolved with Sequelae]
  - Dizziness [Not Recovered/Not Resolved]
  - Balance disorder [Recovered/Resolved with Sequelae]
  - Gastrointestinal haemorrhage [Unknown]
